FAERS Safety Report 21423467 (Version 1)
Quarter: 2022Q4

REPORT INFORMATION
  Report Type: Spontaneous
  Country: DE (occurrence: DE)
  Receive Date: 20221007
  Receipt Date: 20221007
  Transmission Date: 20230112
  Serious: Yes (Hospitalization)
  Sender: FDA-Public Use
  Company Number: DE-ADRED-08163-01

PATIENT
  Age: 71 Year
  Sex: Male
  Weight: 83 kg

DRUGS (12)
  1. PREGABALIN [Suspect]
     Active Substance: PREGABALIN
     Indication: Product used for unknown indication
     Dosage: 200 MILLIGRAM DAILY; 100 MG, 1-0-1-0
  2. METHYLPREDNISOLONE [Suspect]
     Active Substance: METHYLPREDNISOLONE
     Indication: Product used for unknown indication
     Dosage: 4 MILLIGRAM DAILY; 4 MG, 1-0-0-0
  3. CIPROFLOXACIN [Suspect]
     Active Substance: CIPROFLOXACIN
     Indication: Product used for unknown indication
     Route: 065
  4. MYCOPHENOLATE MOFETIL [Suspect]
     Active Substance: MYCOPHENOLATE MOFETIL
     Indication: Product used for unknown indication
     Dosage: 720 MILLIGRAM DAILY; 360 MG, 1-0-1-0
  5. TACROLIMUS [Suspect]
     Active Substance: TACROLIMUS
     Indication: Product used for unknown indication
     Dosage: 2 MILLIGRAM DAILY; 1 MG, 2-0-0-0, ADVAGRAF 1MG
  6. METAMIZOL [Concomitant]
     Active Substance: METAMIZOLE SODIUM
     Indication: Product used for unknown indication
     Dosage: IF NECESSARY UP TO FOUR TIMES 30 DROPS., METAMIZOL 500 MG/ML
  7. PANTOPRAZOLE SODIUM [Concomitant]
     Active Substance: PANTOPRAZOLE SODIUM
     Indication: Product used for unknown indication
     Dosage: 40 MILLIGRAM DAILY; 40 MG, 1-0-0-0
  8. ALLOPURINOL [Concomitant]
     Active Substance: ALLOPURINOL
     Indication: Product used for unknown indication
     Dosage: 100 MILLIGRAM DAILY; 100 MG, 1-0-0-0
  9. Vigantol [Concomitant]
     Indication: Product used for unknown indication
     Dosage: 1000 IU (INTERNATIONAL UNIT) DAILY; 1000 IU, 1-0-0-0, VIGANTOL 1000 IU. VITAMIN D3
  10. PRAVASTATIN [Concomitant]
     Active Substance: PRAVASTATIN
     Indication: Product used for unknown indication
     Dosage: .5 DOSAGE FORMS DAILY; 20 MG, 0-0-0-0.5
  11. FERRO-SANOL DUODENAL [Concomitant]
     Active Substance: FERROUS GLYCINE SULFATE
     Indication: Product used for unknown indication
     Dosage: 100 MILLIGRAM DAILY; 50 MG, 2-0-0-0
  12. URSODIOL [Concomitant]
     Active Substance: URSODIOL
     Indication: Product used for unknown indication
     Dosage: 5 DOSAGE FORMS DAILY; 250 MG, 1-2-2-0

REACTIONS (5)
  - Acute kidney injury [Unknown]
  - Musculoskeletal chest pain [Unknown]
  - Pyrexia [Unknown]
  - Chills [Unknown]
  - Urinary hesitation [Unknown]
